FAERS Safety Report 7365698-7 (Version None)
Quarter: 2011Q1

REPORT INFORMATION
  Report Type: 
  Country: None (occurrence: None)
  Receive Date: 20110322
  Receipt Date: 20110317
  Transmission Date: 20110831
  Serious: Yes (Other)
  Sender: FDA-Public Use
  Company Number: US-PFIZER INC-2011060000

PATIENT
  Sex: Female

DRUGS (1)
  1. GEODON [Suspect]
     Dosage: 20 MG, UNK

REACTIONS (3)
  - BLOOD GLUCOSE INCREASED [None]
  - HEART RATE INCREASED [None]
  - HYPERTENSION [None]
